FAERS Safety Report 4466365-X (Version None)
Quarter: 2004Q3

REPORT INFORMATION
  Report Type: 
  Country: None (occurrence: None)
  Receive Date: 20040930
  Receipt Date: 20040920
  Transmission Date: 20050211
  Serious: Yes (Other)
  Sender: FDA-Public Use
  Company Number: 200414532BCC

PATIENT
  Age: 63 Year
  Sex: Male
  Weight: 80.7403 kg

DRUGS (5)
  1. NAPROXEN [Suspect]
     Indication: MYALGIA
     Dosage: 220 MG, ONCE, ORAL
     Route: 048
     Dates: start: 20040920
  2. SYNTHROID [Concomitant]
  3. SALAGEN [Concomitant]
  4. PEPCID [Concomitant]
  5. ASPIRIN [Concomitant]

REACTIONS (3)
  - BURNING SENSATION [None]
  - FOREIGN BODY TRAUMA [None]
  - HAEMOPTYSIS [None]
